FAERS Safety Report 8554156-X (Version None)
Quarter: 2012Q3

REPORT INFORMATION
  Report Type: 
  Country: None (occurrence: None)
  Receive Date: 20120731
  Receipt Date: 20120727
  Transmission Date: 20120928
  Serious: Yes (Other)
  Sender: FDA-Public Use
  Company Number: PHHY2012CA065454

PATIENT
  Sex: Male

DRUGS (5)
  1. RASILEZ [Suspect]
     Dosage: 1 DF, QD
     Route: 048
  2. B50 [Concomitant]
  3. VITAMIN D [Concomitant]
  4. BREWERS YEAST [Concomitant]
  5. COENZYME Q10 [Concomitant]

REACTIONS (1)
  - COGNITIVE DISORDER [None]
